FAERS Safety Report 18603602 (Version 4)
Quarter: 2021Q1

REPORT INFORMATION
  Report Type: Spontaneous
  Country: JP (occurrence: JP)
  Receive Date: 20201211
  Receipt Date: 20210311
  Transmission Date: 20210419
  Serious: Yes (Death, Hospitalization, Other)
  Sender: FDA-Public Use
  Company Number: JP-BRISTOL-MYERS SQUIBB COMPANY-BMS-2020-104321

PATIENT
  Age: 82 Year
  Sex: Female

DRUGS (3)
  1. OPDIVO [Suspect]
     Active Substance: NIVOLUMAB
     Indication: MALIGNANT MELANOMA
     Dosage: 240 MILLIGRAM, Q2WK
     Route: 041
     Dates: start: 201803, end: 201811
  2. OPDIVO [Suspect]
     Active Substance: NIVOLUMAB
     Dosage: UNK
     Route: 041
     Dates: start: 201811, end: 201812
  3. YERVOY [Suspect]
     Active Substance: IPILIMUMAB
     Indication: MALIGNANT MELANOMA
     Dosage: 50 MILLIGRAM/KILOGRAM, Q3WK
     Route: 041
     Dates: start: 201811, end: 201812

REACTIONS (4)
  - Pancreatitis [Recovering/Resolving]
  - Medication error [Unknown]
  - Malignant neoplasm progression [Fatal]
  - Disseminated intravascular coagulation [Unknown]

NARRATIVE: CASE EVENT DATE: 201812
